FAERS Safety Report 12122540 (Version 2)
Quarter: 2016Q1

REPORT INFORMATION
  Report Type: Spontaneous
  Country: US (occurrence: US)
  Receive Date: 20160226
  Receipt Date: 20160330
  Transmission Date: 20160526
  Serious: Yes (Hospitalization)
  Sender: FDA-Public Use
  Company Number: US-BIOGEN-2016BI00193577

PATIENT
  Age: 50 Year
  Sex: Female

DRUGS (1)
  1. TECFIDERA [Suspect]
     Active Substance: DIMETHYL FUMARATE
     Indication: MULTIPLE SCLEROSIS
     Route: 048
     Dates: start: 20150430, end: 20150630

REACTIONS (6)
  - Swelling [Recovered/Resolved]
  - Drug ineffective [Unknown]
  - Rash erythematous [Unknown]
  - Rash pruritic [Unknown]
  - Impaired self-care [Unknown]
  - Dysstasia [Unknown]

NARRATIVE: CASE EVENT DATE: 20150430
